FAERS Safety Report 6616860-X (Version None)
Quarter: 2010Q1

REPORT INFORMATION
  Report Type: 
  Country: None (occurrence: None)
  Receive Date: 20100301
  Receipt Date: 20100212
  Transmission Date: 20100710
  Serious: Yes (Death)
  Sender: FDA-Public Use
  Company Number: 1000012069

PATIENT
  Age: 53 Year
  Sex: Male

DRUGS (5)
  1. ESCITALOPRAM OXALATE [Suspect]
  2. DULOXETINE HYDROCHLORIDE [Suspect]
  3. ZOLPIDEM [Suspect]
  4. TEMAZEPAM [Suspect]
  5. ETHANOL [Suspect]

REACTIONS (2)
  - CARDIO-RESPIRATORY ARREST [None]
  - COMPLETED SUICIDE [None]
